FAERS Safety Report 21147779 (Version 3)
Quarter: 2022Q3

REPORT INFORMATION
  Report Type: Spontaneous
  Country: CA (occurrence: CA)
  Receive Date: 20220729
  Receipt Date: 20220812
  Transmission Date: 20221027
  Serious: Yes (Life-Threatening, Other)
  Sender: FDA-Public Use
  Company Number: CA-PFIZER INC-PV202200026756

PATIENT
  Age: 61 Year
  Sex: Male

DRUGS (9)
  1. PHENYTOIN SODIUM [Interacting]
     Active Substance: PHENYTOIN SODIUM
     Indication: Cerebrovascular accident
     Dosage: 100 MG, 3X/DAY
     Route: 048
  2. PHENYTOIN SODIUM [Interacting]
     Active Substance: PHENYTOIN SODIUM
     Indication: Seizure
     Dosage: 200 MG, 3X/DAY
     Route: 048
  3. CIPROFLOXACIN [Interacting]
     Active Substance: CIPROFLOXACIN
     Indication: Lung abscess
     Dosage: 750 MG, 2X/DAY
     Route: 048
  4. CIPROFLOXACIN [Interacting]
     Active Substance: CIPROFLOXACIN
     Indication: Aspiration
  5. CLINDAMYCIN [Concomitant]
     Active Substance: CLINDAMYCIN
     Indication: Lung abscess
     Dosage: 450 MG, 4X/DAY
     Route: 048
  6. CLINDAMYCIN [Concomitant]
     Active Substance: CLINDAMYCIN
     Indication: Aspiration
  7. PHENOBARBITAL [Concomitant]
     Active Substance: PHENOBARBITAL
     Dosage: UNK
  8. PIMOZIDE [Concomitant]
     Active Substance: PIMOZIDE
     Dosage: UNK
  9. THIAMINE [Concomitant]
     Active Substance: THIAMINE
     Dosage: UNK

REACTIONS (3)
  - Toxicity to various agents [Unknown]
  - Seizure [Unknown]
  - Drug interaction [Unknown]
